FAERS Safety Report 7096995-0 (Version None)
Quarter: 2010Q4

REPORT INFORMATION
  Report Type: 
  Country: None (occurrence: None)
  Receive Date: 20101111
  Receipt Date: 20100422
  Transmission Date: 20110411
  Serious: No
  Sender: FDA-Public Use
  Company Number: US-KINGPHARMUSA00001-K201000508

PATIENT
  Sex: Male

DRUGS (6)
  1. EMBEDA [Suspect]
     Indication: PAIN
     Dosage: 20 MG, QAM
     Dates: start: 20100301, end: 20100325
  2. EMBEDA [Suspect]
     Dosage: 20 MG, BID
     Dates: start: 20100326, end: 20100419
  3. LORTAB [Concomitant]
     Indication: PAIN
     Dosage: 10 MG, BID
     Dates: start: 20100301, end: 20100325
  4. LORTAB [Concomitant]
     Indication: BREAKTHROUGH PAIN
     Dosage: 10 MG, QD
     Dates: start: 20100325
  5. LORTAB [Concomitant]
     Dosage: 7.5 MG, TID
     Dates: end: 20100316
  6. LORTAB [Concomitant]
     Dosage: 10 MG, TID
     Dates: start: 20100317, end: 20100301

REACTIONS (3)
  - DYSPEPSIA [None]
  - NAUSEA [None]
  - VOMITING [None]
